FAERS Safety Report 19983328 (Version 2)
Quarter: 2021Q4

REPORT INFORMATION
  Report Type: Spontaneous
  Country: JP (occurrence: JP)
  Receive Date: 20211022
  Receipt Date: 20211125
  Transmission Date: 20220303
  Serious: Yes (Other)
  Sender: FDA-Public Use
  Company Number: JP-NOVARTISPH-NVSJ2021JP016982

PATIENT
  Sex: Male

DRUGS (1)
  1. JADENU [Suspect]
     Active Substance: DEFERASIROX
     Indication: Iron overload
     Dosage: UNK
     Route: 048

REACTIONS (3)
  - Foreign body in throat [Recovered/Resolved]
  - C-reactive protein increased [Unknown]
  - Laryngeal inflammation [Recovered/Resolved]
